FAERS Safety Report 7519753-9 (Version None)
Quarter: 2011Q2

REPORT INFORMATION
  Report Type: 
  Country: None (occurrence: None)
  Receive Date: 20110602
  Receipt Date: 20110519
  Transmission Date: 20111010
  Serious: Yes (Hospitalization)
  Sender: FDA-Public Use
  Company Number: FR-PFIZER INC-2007014369

PATIENT
  Age: 37 Year
  Sex: Male

DRUGS (5)
  1. ALPRAZOLAM [Suspect]
     Indication: ANXIETY
     Dosage: UNK
     Route: 048
     Dates: end: 20061118
  2. RELPAX [Suspect]
     Indication: MIGRAINE
     Dosage: UNK
     Route: 048
     Dates: end: 20061118
  3. ZOLPIDEM [Suspect]
     Indication: SLEEP DISORDER
     Dosage: UNK
     Route: 048
     Dates: end: 20061118
  4. IBUPROFEN [Suspect]
     Indication: MIGRAINE
     Dosage: UNK
     Route: 048
     Dates: end: 20061118
  5. ACETAMINOPHEN AND TRAMADOL HCL [Suspect]
     Dosage: UNK
     Route: 048
     Dates: end: 20061118

REACTIONS (2)
  - DRUG ABUSE [None]
  - DRUG WITHDRAWAL SYNDROME [None]
